FAERS Safety Report 18940392 (Version 1)
Quarter: 2021Q1

REPORT INFORMATION
  Report Type: Spontaneous
  Country: US (occurrence: US)
  Receive Date: 20210225
  Receipt Date: 20210225
  Transmission Date: 20210420
  Serious: No
  Sender: FDA-Public Use
  Company Number: US-ASTRAZENECA-2021A081167

PATIENT
  Sex: Female

DRUGS (1)
  1. BEVESPI AEROSPHERE [Suspect]
     Active Substance: FORMOTEROL FUMARATE\GLYCOPYRROLATE
     Dosage: 9UG/INHAL TWO TIMES A DAY
     Route: 055

REACTIONS (4)
  - Respiration abnormal [Unknown]
  - Drug dose omission by device [Unknown]
  - Drug ineffective [Unknown]
  - Device malfunction [Unknown]
